FAERS Safety Report 26003766 (Version 5)
Quarter: 2025Q4

REPORT INFORMATION
  Report Type: Report from Study
  Country: KP (occurrence: KR)
  Receive Date: 20251106
  Receipt Date: 20251216
  Transmission Date: 20260118
  Serious: Yes (Hospitalization, Other)
  Sender: AUROBINDO
  Company Number: KP-AUROBINDO-AUR-APL-2025-044141

PATIENT
  Age: 54 Year
  Sex: Female
  Weight: 70.3 kg

DRUGS (105)
  1. PRALATREXATE [Suspect]
     Active Substance: PRALATREXATE
     Indication: Peripheral T-cell lymphoma unspecified stage III
     Dosage: 30 MILLIGRAM/SQ. METER, CYCLICAL (
     Dates: start: 20250804, end: 20250804
  2. PRALATREXATE [Suspect]
     Active Substance: PRALATREXATE
     Dosage: 30 MILLIGRAM/SQ. METER, CYCLICAL
     Dates: start: 20250811, end: 20250811
  3. PRALATREXATE [Suspect]
     Active Substance: PRALATREXATE
     Dosage: 30 MILLIGRAM/SQ. METER, CYCLICAL
     Dates: start: 20251002, end: 20251002
  4. PRALATREXATE [Suspect]
     Active Substance: PRALATREXATE
     Dosage: 30 MILLIGRAM/SQ. METER, CYCLICAL
     Dates: start: 20251010, end: 20251010
  5. PRALATREXATE [Suspect]
     Active Substance: PRALATREXATE
     Dosage: 20 MILLIGRAM/SQ. METER, CYCLICAL
     Dates: start: 20251030, end: 20251030
  6. PRALATREXATE [Suspect]
     Active Substance: PRALATREXATE
     Dosage: 20 MILLIGRAM/SQ. METER, CYCLICAL
     Dates: start: 20251106, end: 20251106
  7. PREDNISONE [Suspect]
     Active Substance: PREDNISONE
     Indication: Peripheral T-cell lymphoma unspecified stage III
     Dosage: 100 MILLIGRAM, CYCLICAL (T
     Route: 061
  8. PREDNISONE [Suspect]
     Active Substance: PREDNISONE
     Dosage: 50 MILLIGRAM, TWO TIMES A DAY
     Route: 061
     Dates: start: 20250730, end: 20250731
  9. PREDNISONE [Suspect]
     Active Substance: PREDNISONE
     Dosage: 100 MILLIGRAM, CYCLICAL (
     Route: 061
  10. PREDNISONE [Suspect]
     Active Substance: PREDNISONE
     Dosage: 100 MILLIGRAM
     Route: 065
  11. PREDNISONE [Suspect]
     Active Substance: PREDNISONE
     Dosage: 100 MILLIGRAM, CYCLICAL (
     Route: 061
  12. ONCOVIN [Suspect]
     Active Substance: VINCRISTINE SULFATE
     Indication: Peripheral T-cell lymphoma unspecified stage III
     Dosage: 1.4 MILLIGRAM/SQ. METER, CYCLICAL (
     Dates: start: 20250804, end: 20250804
  13. ONCOVIN [Suspect]
     Active Substance: VINCRISTINE SULFATE
     Dosage: 1.4 MILLIGRAM/SQ. METER, CYCLICAL
     Dates: start: 20251002, end: 20251002
  14. ONCOVIN [Suspect]
     Active Substance: VINCRISTINE SULFATE
     Dosage: 1.4 MILLIGRAM/SQ. METER, CYCLICAL
     Dates: start: 20251030, end: 20251030
  15. CYCLOPHOSPHAMIDE [Suspect]
     Active Substance: CYCLOPHOSPHAMIDE
     Indication: Peripheral T-cell lymphoma unspecified stage III
     Dosage: 750 MILLIGRAM/SQ. METER, CYCLICAL (T
     Dates: start: 20250804, end: 20250804
  16. CYCLOPHOSPHAMIDE [Suspect]
     Active Substance: CYCLOPHOSPHAMIDE
     Dosage: 750 MILLIGRAM/SQ. METER, CYCLICAL (
     Dates: start: 20251002, end: 20251002
  17. CYCLOPHOSPHAMIDE [Suspect]
     Active Substance: CYCLOPHOSPHAMIDE
     Dosage: 750 MILLIGRAM/SQ. METER, CYCLICAL (
     Dates: start: 20251030, end: 20251030
  18. FOLIC ACID [Suspect]
     Active Substance: FOLIC ACID
     Indication: Product used for unknown indication
     Dosage: 1 MILLIGRAM, ONCE A DAY
     Route: 061
     Dates: start: 20250729
  19. FOLIC ACID [Suspect]
     Active Substance: FOLIC ACID
     Dosage: 1 MILLIGRAM, ONCE A DAY   CYCLE 1 DAY 1
     Route: 061
     Dates: start: 20250804, end: 20250804
  20. FOLIC ACID [Suspect]
     Active Substance: FOLIC ACID
     Dosage: 1 MILLIGRAM, ONCE A DAY CYCLE 1 DAY 8
     Route: 061
     Dates: start: 20250811, end: 20250811
  21. FOLIC ACID [Suspect]
     Active Substance: FOLIC ACID
     Dosage: 1 MILLIGRAM, ONCE A DAYCYCLE 2 DAY 1
     Route: 061
     Dates: start: 20251002, end: 20251002
  22. FOLIC ACID [Suspect]
     Active Substance: FOLIC ACID
     Dosage: 1 MILLIGRAM, ONCE A DAYCYCLE 2 DAY 8
     Route: 061
     Dates: start: 20251010, end: 20251010
  23. VITAMIN B12 [Suspect]
     Active Substance: CYANOCOBALAMIN
     Indication: Product used for unknown indication
     Dosage: UNK
     Route: 065
  24. VITAMIN B12 [Suspect]
     Active Substance: CYANOCOBALAMIN
     Dosage: UNK
     Route: 065
  25. TANTUM [Concomitant]
     Active Substance: BENZYDAMINE HYDROCHLORIDE
     Indication: Product used for unknown indication
     Dosage: UNK, 3 TIMES A DAY
     Route: 065
     Dates: start: 20250817
  26. ULTRACET [Concomitant]
     Active Substance: ACETAMINOPHEN\TRAMADOL HYDROCHLORIDE
     Indication: Myalgia
     Dosage: UNK, AS NECESSARY 650/75 MILLIGRAM
     Route: 061
     Dates: start: 20250729, end: 20250810
  27. FAMOTIDINE [Concomitant]
     Active Substance: FAMOTIDINE
     Indication: Lymphoma
     Dosage: 20 MILLIGRAM, TWO TIMES A DAY
     Route: 061
     Dates: start: 20250730, end: 20250731
  28. FAMOTIDINE [Concomitant]
     Active Substance: FAMOTIDINE
     Indication: Dyspepsia
     Dosage: 20 MILLIGRAM, ONCE A DAY
     Route: 061
     Dates: start: 20250805, end: 20250808
  29. FAMOTIDINE [Concomitant]
     Active Substance: FAMOTIDINE
     Dosage: 20 MILLIGRAM, ONCE A DAY
     Route: 061
     Dates: start: 20250805, end: 20250808
  30. PIPERACILLIN SODIUM\TAZOBACTAM SODIUM [Concomitant]
     Active Substance: PIPERACILLIN SODIUM\TAZOBACTAM SODIUM
     Indication: Product used for unknown indication
     Dosage: 4.5 GRAM, FOUR TIMES/DAY (VIAL)
     Dates: start: 20250821
  31. PREDNISOLONE [Concomitant]
     Active Substance: PREDNISOLONE
     Indication: Lymphoma
     Dosage: 50 MILLIGRAM, TWO TIMES A DAY
     Route: 061
     Dates: start: 20250730, end: 20250731
  32. CYANOCOBALAMIN [Concomitant]
     Active Substance: CYANOCOBALAMIN
     Indication: Product used for unknown indication
     Dosage: 1 MILLIGRAM, ONCE A DAY (OTHER AMPULE)
     Dates: start: 20250729, end: 20250729
  33. CYANOCOBALAMIN [Concomitant]
     Active Substance: CYANOCOBALAMIN
     Dosage: 1 MILLIGRAM, ONCE A DAY (OTHER AMPULE)
     Dates: start: 20251010, end: 20251010
  34. AKYNZEO [Concomitant]
     Indication: Chemotherapy
     Dosage: UNK, ONCE A DAY
     Route: 061
     Dates: start: 20250804, end: 20250804
  35. AKYNZEO [Concomitant]
     Dosage: UNK, ONCE A DAY
     Route: 061
     Dates: start: 20251002, end: 20251002
  36. AKYNZEO [Concomitant]
     Dosage: UNK, ONCE A DAY
     Route: 061
     Dates: start: 20251010, end: 20251010
  37. AKYNZEO [Concomitant]
     Dosage: 1 DOSAGE FORM, ONCE A DAY
     Route: 061
     Dates: start: 20251030, end: 20251030
  38. AKYNZEO [Concomitant]
     Dosage: UNK, ONCE A DAY
     Route: 061
     Dates: start: 20251106, end: 20251106
  39. GASTER [Concomitant]
     Active Substance: FAMOTIDINE
     Indication: Dyspepsia
     Dosage: 20 MILLIGRAM, ONCE A DAY
     Dates: start: 20250804, end: 20250804
  40. GASTER [Concomitant]
     Active Substance: FAMOTIDINE
     Dosage: 20 MILLIGRAM, ONCE A DAY
     Dates: start: 20251002, end: 20251002
  41. GASTER [Concomitant]
     Active Substance: FAMOTIDINE
     Dosage: 20 MILLIGRAM, ONCE A DAY
     Dates: start: 20251030, end: 20251030
  42. Sodium bicarbonate gargle [Concomitant]
     Indication: Product used for unknown indication
     Dosage: UNK, AS NECESSARY
     Route: 065
     Dates: start: 20250811, end: 20250817
  43. MAGNESIUM HYDROXIDE [Concomitant]
     Active Substance: MAGNESIUM HYDROXIDE
     Indication: Constipation
     Dosage: 500 MILLIGRAM, AS NECESSARY
     Route: 061
     Dates: start: 20250811
  44. NEULAPEG [Concomitant]
     Indication: Neutropenia
     Dosage: 6 MILLIGRAM, ONCE A DAY
     Dates: start: 20250812, end: 20250812
  45. TRAMADOL HYDROCHLORIDE [Concomitant]
     Active Substance: TRAMADOL HYDROCHLORIDE
     Indication: Product used for unknown indication
     Dosage: 50 MILLIGRAM, AS NECESSARY
     Route: 061
     Dates: start: 20250811
  46. ACETPHEN PREMIX [Concomitant]
     Indication: Product used for unknown indication
     Dosage: 1 GRAM, ONCE A DAY
     Dates: start: 20250817, end: 20250817
  47. ACETPHEN PREMIX [Concomitant]
     Dosage: 1 GRAM, ONCE A DAY
     Dates: start: 20251023, end: 20251023
  48. CEFTRIAXONE SODIUM [Concomitant]
     Active Substance: CEFTRIAXONE SODIUM
     Indication: Product used for unknown indication
     Dosage: 2 GRAM, ONCE A DAY (VIAL)
     Dates: start: 20250817, end: 20250817
  49. Plasma solution [Concomitant]
     Indication: Product used for unknown indication
     Dosage: 1000 MILLILITER, ONCE A DAY
     Dates: start: 20250817, end: 20250817
  50. LEVOFLOXACIN [Concomitant]
     Active Substance: LEVOFLOXACIN
     Indication: Product used for unknown indication
     Dosage: 750 MILLIGRAM, ONCE A DAY (BOTTLE)
     Dates: start: 20250821
  51. KAMISTAD N [Concomitant]
     Indication: Product used for unknown indication
     Dosage: UNK, 3 TIMES A DAY
     Route: 048
     Dates: start: 20250821
  52. PIPERACILLIN SODIUM\TAZOBACTAM SODIUM [Concomitant]
     Active Substance: PIPERACILLIN SODIUM\TAZOBACTAM SODIUM
     Indication: Product used for unknown indication
     Dosage: 4.5 GRAM, FOUR TIMES/DAY
     Dates: start: 20250821, end: 20250904
  53. TANTUM [Concomitant]
     Active Substance: BENZYDAMINE HYDROCHLORIDE
     Indication: Product used for unknown indication
     Dosage: UNK, 3 TIMES A DAY
     Route: 065
     Dates: start: 20250817
  54. TANTUM [Concomitant]
     Active Substance: BENZYDAMINE HYDROCHLORIDE
     Dosage: UNK, 3 TIMES A DAY
     Route: 048
     Dates: start: 20250821, end: 20250906
  55. LEVOFLOXACIN HEMIHYDRATE [Concomitant]
     Active Substance: LEVOFLOXACIN
     Indication: Product used for unknown indication
     Dosage: 750 MILLIGRAM, ONCE A DAY
     Dates: start: 20250821, end: 20250904
  56. Adipam [Concomitant]
     Indication: Product used for unknown indication
     Dosage: 10 MILLIGRAM, 3 TIMES A DAY
     Route: 061
     Dates: start: 20250902, end: 20250909
  57. COUGH NOS [Concomitant]
     Active Substance: UNSPECIFIED INGREDIENT
     Indication: Product used for unknown indication
     Dosage: UNK, AS NECESSARY
     Route: 061
     Dates: start: 20250829, end: 20250909
  58. K-CAB [Concomitant]
     Indication: Prophylaxis
     Dosage: 50 MILLIGRAM, ONCE A DAY
     Route: 061
     Dates: start: 20250821, end: 20250909
  59. SOLONDO [Concomitant]
     Indication: Product used for unknown indication
     Dosage: 10 MILLIGRAM, TWO TIMES A DAY
     Route: 061
     Dates: start: 20250908, end: 20250908
  60. SOLONDO [Concomitant]
     Dosage: 10 MILLIGRAM, TWO TIMES A DAY
     Route: 061
     Dates: start: 20250909, end: 20250911
  61. SOLONDO [Concomitant]
     Dosage: 20 MILLIGRAM, TWO TIMES A DAY
     Route: 061
     Dates: start: 20250912, end: 20250921
  62. METHYLPREDNISOLONE [Concomitant]
     Active Substance: METHYLPREDNISOLONE
     Indication: Product used for unknown indication
     Dosage: 4 MILLIGRAM, TWO TIMES A DAY
     Route: 061
     Dates: start: 20250828, end: 20250903
  63. SULFAMETHOXAZOLE\TRIMETHOPRIM [Concomitant]
     Active Substance: SULFAMETHOXAZOLE\TRIMETHOPRIM
     Indication: Product used for unknown indication
     Dosage: 2 DOSAGE FORM, TWO TIMES A DAY
     Route: 061
     Dates: start: 20250823, end: 20250908
  64. SULFAMETHOXAZOLE\TRIMETHOPRIM [Concomitant]
     Active Substance: SULFAMETHOXAZOLE\TRIMETHOPRIM
     Dosage: 2 DOSAGE FORM, TWO TIMES A DAY
     Route: 061
     Dates: start: 20250909, end: 20250910
  65. SULFAMETHOXAZOLE\TRIMETHOPRIM [Concomitant]
     Active Substance: SULFAMETHOXAZOLE\TRIMETHOPRIM
     Dosage: UNK UNK, TWO TIMES A DAY (1 OTHER)
     Route: 061
     Dates: start: 20250911, end: 20250914
  66. SULFAMETHOXAZOLE\TRIMETHOPRIM [Concomitant]
     Active Substance: SULFAMETHOXAZOLE\TRIMETHOPRIM
     Dosage: UNK UNK, TWO TIMES A DAY (2 OTHER)
     Route: 061
     Dates: start: 20250915, end: 20250921
  67. SULFAMETHOXAZOLE\TRIMETHOPRIM [Concomitant]
     Active Substance: SULFAMETHOXAZOLE\TRIMETHOPRIM
     Dosage: UNK UNK, TWO TIMES A DAY (1 OTHER)
     Route: 061
     Dates: start: 20250922
  68. CODEINE PHOSPHATE [Concomitant]
     Active Substance: CODEINE PHOSPHATE
     Indication: Product used for unknown indication
     Dosage: 10 MICROGRAM, ONCE A DAY
     Route: 061
     Dates: start: 20250831, end: 20250902
  69. Atrovent-UDV Nebulizer solution [Concomitant]
     Indication: Product used for unknown indication
     Dosage: 2 MILLILITER, 3 TIMES A DAY
     Dates: start: 20250821, end: 20250909
  70. PULMICORT RESPULES [Concomitant]
     Active Substance: BUDESONIDE
     Indication: Product used for unknown indication
     Dosage: 0.5 MILLIGRAM, 3 TIMES A DAY
     Dates: start: 20250901, end: 20250909
  71. PACETA [Concomitant]
     Indication: Product used for unknown indication
     Dosage: 1 GRAM, AS NECESSARY
     Dates: start: 20250822, end: 20250908
  72. KETOLMINE [Concomitant]
     Indication: Product used for unknown indication
     Dosage: 30 MILLIGRAM, AS NECESSARY
     Dates: start: 20250908, end: 20250908
  73. LIDOCAINE HYDROCHLORIDE [Concomitant]
     Active Substance: LIDOCAINE HYDROCHLORIDE
     Indication: Product used for unknown indication
     Dosage: 2 PERCENT, AS NECESSARY
     Dates: start: 20250827, end: 20250827
  74. PENIRAMIN [Concomitant]
     Indication: Product used for unknown indication
     Dosage: 4 MILLIGRAM, AS NECESSARY
     Dates: start: 20250908, end: 20250908
  75. PENIRAMIN [Concomitant]
     Dosage: 4 MILLIGRAM, ONCE A DAY
     Dates: start: 20251106, end: 20251106
  76. LASIX [Concomitant]
     Active Substance: FUROSEMIDE
     Indication: Product used for unknown indication
     Dosage: 20 MILLIGRAM, AS NECESSARY
     Dates: start: 20250822, end: 20250826
  77. HYDROCORTISONE SODIUM SUCCINATE [Concomitant]
     Active Substance: HYDROCORTISONE SODIUM SUCCINATE
     Indication: Product used for unknown indication
     Dosage: 100 MILLIGRAM, TWO TIMES A DAY
     Dates: start: 20250822, end: 20250824
  78. HYDROCORTISONE SODIUM SUCCINATE [Concomitant]
     Active Substance: HYDROCORTISONE SODIUM SUCCINATE
     Dosage: 50 MILLIGRAM, TWO TIMES A DAY
     Dates: start: 20250825, end: 20250827
  79. DEXAMETHASONE SODIUM PHOSPHATE [Concomitant]
     Active Substance: DEXAMETHASONE SODIUM PHOSPHATE
     Indication: Product used for unknown indication
     Dosage: 5 MILLIGRAM, AS NECESSARY
     Dates: start: 20250908, end: 20250908
  80. VITAMINS [Concomitant]
     Active Substance: VITAMINS
     Indication: Product used for unknown indication
     Dosage: UNK, ONCE A DAY
     Dates: start: 20250904, end: 20250909
  81. Alphamin [Concomitant]
     Indication: Product used for unknown indication
     Dosage: UNK, ONCE A DAY
     Dates: start: 20250821, end: 20250909
  82. CEFEM [Concomitant]
     Indication: Product used for unknown indication
     Dosage: 2 GRAM, 3 TIMES A DAY
     Dates: start: 20250904, end: 20250909
  83. GAVIR [Concomitant]
     Indication: Product used for unknown indication
     Dosage: 250 MILLIGRAM, TWO TIMES A DAY
     Dates: start: 20250825, end: 20250909
  84. ALBUMIN HUMAN [Concomitant]
     Active Substance: ALBUMIN HUMAN
     Indication: Product used for unknown indication
     Dosage: 100 MILLILITER, ONCE A DAY
     Dates: start: 20250824, end: 20250825
  85. XYZAL [Concomitant]
     Active Substance: LEVOCETIRIZINE DIHYDROCHLORIDE
     Indication: Product used for unknown indication
     Dosage: 5 MILLIGRAM, ONCE A DAY
     Route: 061
     Dates: start: 20250911, end: 20250914
  86. URSODIOL [Concomitant]
     Active Substance: URSODIOL
     Indication: Product used for unknown indication
     Dosage: 200 MICROGRAM, 3 TIMES A DAY
     Route: 061
     Dates: start: 20250911, end: 20250914
  87. URSODIOL [Concomitant]
     Active Substance: URSODIOL
     Dosage: 300 MILLIGRAM, 3 TIMES A DAY
     Route: 061
     Dates: start: 20250915, end: 20250921
  88. URSODIOL [Concomitant]
     Active Substance: URSODIOL
     Dosage: 200 MILLIGRAM, 3 TIMES A DAY
     Route: 061
     Dates: start: 20250922, end: 20251001
  89. TWOLION [Concomitant]
     Indication: Product used for unknown indication
     Dosage: 10 MILLIGRAM, TWO TIMES A DAY
     Route: 061
     Dates: start: 20250915, end: 20250921
  90. DESOWEN [Concomitant]
     Active Substance: DESONIDE
     Indication: Product used for unknown indication
     Dosage: UNK, ONCE A DAY
     Route: 048
     Dates: start: 20250915, end: 20250921
  91. RAPISON [Concomitant]
     Indication: Product used for unknown indication
     Dosage: 10 MILLIGRAM, ONCE A DAY
     Route: 061
     Dates: start: 20250922, end: 20251001
  92. RAPISON [Concomitant]
     Dosage: 5 MILLIGRAM, ONCE A DAY
     Route: 061
     Dates: start: 20250922, end: 20251001
  93. RAPISON [Concomitant]
     Dosage: 5 MILLIGRAM, ONCE A DAY
     Route: 061
     Dates: start: 20251007
  94. RAPISON [Concomitant]
     Dosage: 10 MILLIGRAM, ONCE A DAY
     Route: 061
     Dates: start: 20251111
  95. RAPISON [Concomitant]
     Dosage: 5 MILLIGRAM, ONCE A DAY
     Route: 061
     Dates: start: 20251111
  96. Neulapeg pfs [Concomitant]
     Indication: Prophylaxis
     Dosage: 6 MILLIGRAM, ONCE A DAY
     Dates: start: 20251011, end: 20251011
  97. THIAM KIT [Concomitant]
     Indication: Product used for unknown indication
     Dosage: 1 GRAM, TWO TIMES A DAY
     Dates: start: 20251020, end: 20251022
  98. ACETAMINOPHEN [Concomitant]
     Active Substance: ACETAMINOPHEN
     Indication: Product used for unknown indication
     Dosage: 500 MILLIGRAM, 3 TIMES A DAY
     Route: 061
     Dates: start: 20251020, end: 20251022
  99. MOSATAN [Concomitant]
     Indication: Prophylaxis
     Dosage: UNK, 3 TIMES A DAY
     Route: 061
     Dates: start: 20251020, end: 20251022
  100. DICLOFENAC SODIUM [Concomitant]
     Active Substance: DICLOFENAC SODIUM
     Indication: Product used for unknown indication
     Dosage: 2 MILLILITER, PRN
     Dates: start: 20251020, end: 20251022
  101. AKOCIN [Concomitant]
     Indication: Product used for unknown indication
     Dosage: 100 MILLIGRAM, ONCE A DAY
     Dates: start: 20251020, end: 20251020
  102. GASTER [Concomitant]
     Active Substance: FAMOTIDINE
     Indication: Dyspepsia
     Dosage: 20 MILLIGRAM, TWO TIMES A DAY
     Route: 061
     Dates: start: 20250911
  103. Plaju [Concomitant]
     Indication: Product used for unknown indication
     Dosage: UNK, ONCE A DAY
     Dates: start: 20251023, end: 20251023
  104. TAZOPERAN [Concomitant]
     Indication: Infection prophylaxis
     Dosage: 4.5 GRAM, FOUR TIMES/DAY
     Dates: start: 20251117, end: 20251120
  105. MEPERIDINE HYDROCHLORIDE [Concomitant]
     Active Substance: MEPERIDINE HYDROCHLORIDE
     Indication: Product used for unknown indication
     Dosage: 25 MILLIGRAM, AS NECESSARY
     Dates: start: 20251117, end: 20251117

REACTIONS (11)
  - Pneumonia [Recovered/Resolved]
  - Arthritis reactive [Not Recovered/Not Resolved]
  - Aspartate aminotransferase increased [Recovered/Resolved]
  - Alanine aminotransferase increased [Recovered/Resolved]
  - Stomatitis [Not Recovered/Not Resolved]
  - Pelvic pain [Not Recovered/Not Resolved]
  - Pyrexia [Recovered/Resolved]
  - Rash [Recovered/Resolved]
  - Nausea [Recovered/Resolved]
  - Pain in extremity [Not Recovered/Not Resolved]
  - Localised oedema [Recovered/Resolved]

NARRATIVE: CASE EVENT DATE: 20250809
